FAERS Safety Report 4539653-6 (Version None)
Quarter: 2004Q4

REPORT INFORMATION
  Report Type: 
  Country: None (occurrence: None)
  Receive Date: 20041228
  Receipt Date: 20041217
  Transmission Date: 20050328
  Serious: Yes (Hospitalization)
  Sender: FDA-Public Use
  Company Number: DE-BRISTOL-MYERS SQUIBB COMPANY-12799011

PATIENT
  Age: 64 Year
  Sex: Male

DRUGS (3)
  1. ABILIFY [Suspect]
     Indication: PARANOIA
     Route: 048
     Dates: start: 20040901, end: 20041012
  2. PROMETHAZINE [Concomitant]
     Indication: INSOMNIA
     Route: 048
     Dates: start: 20040901
  3. LACTULOSE [Concomitant]
     Dosage: 2 X 1 TABLESPOON
     Route: 048

REACTIONS (1)
  - ACUTE FEBRILE NEUTROPHILIC DERMATOSIS [None]
